FAERS Safety Report 8119612-7 (Version None)
Quarter: 2012Q1

REPORT INFORMATION
  Report Type: 
  Country: None (occurrence: None)
  Receive Date: 20120203
  Receipt Date: 20120117
  Transmission Date: 20120608
  Serious: Yes (Hospitalization)
  Sender: FDA-Public Use
  Company Number: JPI-P-003970

PATIENT
  Age: 62 Year
  Sex: Female
  Weight: 75.7507 kg

DRUGS (18)
  1. PRAMIPEXOLE DIHYDROCHLORIDE [Suspect]
     Indication: RESTLESS LEGS SYNDROME
     Dosage: UNKNOWN
  2. IBUPROFEN [Concomitant]
  3. DESVENLAFAXINE [Concomitant]
  4. VITAMIN TAB [Concomitant]
  5. CELECOXIB [Concomitant]
  6. XYREM [Suspect]
     Indication: MIDDLE INSOMNIA
     Dosage: UNKNOWN, ORAL
     Route: 048
  7. TOPIRAMATE [Suspect]
     Indication: RESTLESS LEGS SYNDROME
     Dosage: UNKNOWN
  8. BIO-IDENTICAL VAGINAL HORMONE CREAM [Concomitant]
  9. L-METHYLFOLATE (DEPLIN) [Concomitant]
  10. XYREM [Suspect]
     Indication: SLEEP DISORDER
     Dosage: 4.5 GM (2.25 GM, 2 IN 1 D), ORAL, (3.75 GM, 3.75 GM ONCE EVERY 2-3 WEEKS AS NEEDED)
     Route: 048
     Dates: start: 20111128
  11. XYREM [Suspect]
     Indication: SLEEP DISORDER
     Dosage: 4.5 GM (2.25 GM, 2 IN 1 D), ORAL, (3.75 GM, 3.75 GM ONCE EVERY 2-3 WEEKS AS NEEDED)
     Route: 048
     Dates: start: 20080520
  12. XYREM [Suspect]
     Indication: SLEEP DISORDER
     Dosage: 4.5 GM (2.25 GM, 2 IN 1 D), ORAL, (3.75 GM, 3.75 GM ONCE EVERY 2-3 WEEKS AS NEEDED)
     Route: 048
     Dates: end: 20110601
  13. FISH OIL [Concomitant]
  14. TRAMADOL HCL [Concomitant]
  15. ACETAMINOPHEN W/ CODEINE [Concomitant]
  16. METHYLPHENIDATE [Concomitant]
  17. VITAMIN D [Concomitant]
  18. BUPROPION HCL [Concomitant]

REACTIONS (7)
  - INITIAL INSOMNIA [None]
  - ARTHROPATHY [None]
  - SCIATICA [None]
  - INTERVERTEBRAL DISC DEGENERATION [None]
  - GASTROOESOPHAGEAL REFLUX DISEASE [None]
  - RESTLESS LEGS SYNDROME [None]
  - MIDDLE INSOMNIA [None]
